FAERS Safety Report 5090415-3 (Version None)
Quarter: 2006Q3

REPORT INFORMATION
  Report Type: 
  Country: None (occurrence: None)
  Receive Date: 20060828
  Receipt Date: 20060501
  Transmission Date: 20061208
  Serious: No
  Sender: FDA-Public Use
  Company Number: US-GLAXOSMITHKLINE-A0603833A

PATIENT
  Age: 81 Year
  Sex: Female

DRUGS (4)
  1. WELLBUTRIN XL [Suspect]
     Indication: DEPRESSION
     Dosage: 150MG PER DAY
     Route: 048
     Dates: start: 20060428
  2. BUPROPION HCL [Suspect]
     Indication: DRUG USE FOR UNKNOWN INDICATION
     Route: 048
  3. BLOOD PRESSURE MEDICATION [Concomitant]
  4. MULTIPLE MEDICATIONS [Concomitant]

REACTIONS (7)
  - ABDOMINAL DISTENSION [None]
  - BALANCE DISORDER [None]
  - BODY TEMPERATURE FLUCTUATION [None]
  - CRYING [None]
  - DIZZINESS [None]
  - PRURITUS [None]
  - STOMACH DISCOMFORT [None]
